FAERS Safety Report 4950364-5 (Version None)
Quarter: 2006Q1

REPORT INFORMATION
  Report Type: 
  Country: None (occurrence: None)
  Receive Date: 20060315
  Receipt Date: 20060228
  Transmission Date: 20060701
  Serious: Yes (Hospitalization)
  Sender: FDA-Public Use
  Company Number: DEU-2006-0002044

PATIENT
  Age: 88 Year
  Sex: Female
  Weight: 46 kg

DRUGS (3)
  1. PALLADONE [Suspect]
     Indication: PAIN
     Dosage: 4 MG, BID, ORAL
     Route: 048
     Dates: start: 20051021, end: 20051115
  2. DIPYRONE TAB [Concomitant]
  3. LACTULOSE [Concomitant]

REACTIONS (3)
  - DEVICE FAILURE [None]
  - FALL [None]
  - FEMORAL NECK FRACTURE [None]
